FAERS Safety Report 11893104 (Version 1)
Quarter: 2016Q1

REPORT INFORMATION
  Report Type: Spontaneous
  Country: US (occurrence: US)
  Receive Date: 20160106
  Receipt Date: 20160106
  Transmission Date: 20160526
  Serious: No
  Sender: FDA-Public Use
  Company Number: US-TARO-2015TAR00680

PATIENT
  Sex: Female

DRUGS (2)
  1. CLOTRIMAZOLE VAGINAL CREAM USP 1% 7 DAY [Suspect]
     Active Substance: CLOTRIMAZOLE
     Indication: FUNGAL INFECTION
     Dosage: 1 DOSAGE UNITS, ONCE
     Route: 067
     Dates: start: 20150714, end: 20150714
  2. UNSPECIFIED VITAMIN(S) [Concomitant]
     Dosage: UNK, 1X/DAY

REACTIONS (2)
  - Application site pruritus [Recovered/Resolved]
  - Application site pain [Recovered/Resolved]

NARRATIVE: CASE EVENT DATE: 20150714
